FAERS Safety Report 4561190-3 (Version None)
Quarter: 2005Q1

REPORT INFORMATION
  Report Type: 
  Country: None (occurrence: None)
  Receive Date: 20050121
  Receipt Date: 20050110
  Transmission Date: 20050727
  Serious: Yes (Other)
  Sender: FDA-Public Use
  Company Number: 21671

PATIENT
  Age: 70 Year
  Sex: Female

DRUGS (3)
  1. NIASPAN [Suspect]
     Indication: HIGH DENSITY LIPOPROTEIN DECREASED
     Dosage: 500 MG BID PO
     Route: 048
     Dates: start: 20030601, end: 20040730
  2. ALLEGRA [Concomitant]
  3. ALTACE [Concomitant]

REACTIONS (4)
  - ASTHENIA [None]
  - MUSCULAR WEAKNESS [None]
  - MYALGIA [None]
  - ROTATOR CUFF SYNDROME [None]
